FAERS Safety Report 12838696 (Version 1)
Quarter: 2016Q4

REPORT INFORMATION
  Report Type: Spontaneous
  Country: US (occurrence: US)
  Receive Date: 20161011
  Receipt Date: 20161011
  Transmission Date: 20170207
  Serious: Yes (Other)
  Sender: FDA-Public Use
  Company Number: None

PATIENT
  Age: 25 Year
  Sex: Female
  Weight: 64.5 kg

DRUGS (1)
  1. BUMEX [Suspect]
     Active Substance: BUMETANIDE
     Dosage: ALARIS SMART PUMP - PUMP WAS ATTACHED TO PCU MODEL # 8015, SN#12691827

REACTIONS (1)
  - Device malfunction [None]

NARRATIVE: CASE EVENT DATE: 20160926
